FAERS Safety Report 9358916 (Version 2)
Quarter: 2013Q2

REPORT INFORMATION
  Report Type: Spontaneous
  Country: TR (occurrence: TR)
  Receive Date: 20130620
  Receipt Date: 20130628
  Transmission Date: 20140414
  Serious: Yes (Hospitalization)
  Sender: FDA-Public Use
  Company Number: PHHY2013TR062837

PATIENT
  Age: 88 Year
  Sex: Male

DRUGS (1)
  1. WARFARIN [Suspect]
     Indication: CEREBROVASCULAR ACCIDENT
     Dosage: 5 MG, QD

REACTIONS (7)
  - Blindness [Unknown]
  - Disorientation [Recovering/Resolving]
  - Agitation [Unknown]
  - Cerebral haemorrhage [Unknown]
  - Haematoma [Recovering/Resolving]
  - Brain oedema [Unknown]
  - Overdose [Unknown]
